FAERS Safety Report 5573422-3 (Version None)
Quarter: 2007Q4

REPORT INFORMATION
  Report Type: 
  Country: None (occurrence: None)
  Receive Date: 20071220
  Receipt Date: 20071220
  Transmission Date: 20080405
  Serious: Yes (Hospitalization)
  Sender: FDA-Public Use
  Company Number: None

PATIENT
  Age: 65 Year
  Sex: Male

DRUGS (2)
  1. CIPROFLOXACIN [Suspect]
     Indication: SURGERY
     Dosage: 500MG  BID  PO
     Route: 048
     Dates: start: 20070628, end: 20070919
  2. PHENAZOPYRIDINE [Suspect]
     Indication: PAIN
     Dosage: 100MG  BID  PO
     Route: 048
     Dates: start: 20070904, end: 20070919

REACTIONS (4)
  - ANGIOEDEMA [None]
  - OEDEMA PERIPHERAL [None]
  - PRURITUS [None]
  - URTICARIA [None]
